FAERS Safety Report 11202858 (Version 1)
Quarter: 2015Q2

REPORT INFORMATION
  Report Type: Spontaneous
  Country: US (occurrence: None)
  Receive Date: 20150618
  Receipt Date: 20150618
  Transmission Date: 20150821
  Serious: Yes (Life-Threatening)
  Sender: FDA-Public Use
  Company Number: None

PATIENT
  Age: 34 Year
  Sex: Male
  Weight: 75 kg

DRUGS (2)
  1. HALOPERIDOL. [Suspect]
     Active Substance: HALOPERIDOL
     Indication: MANIA
     Route: 048
     Dates: start: 20120915, end: 20120918
  2. HALOPERIDOL. [Suspect]
     Active Substance: HALOPERIDOL
     Indication: BIPOLAR DISORDER
     Route: 048
     Dates: start: 20120915, end: 20120918

REACTIONS (5)
  - Dyspnoea [None]
  - Angioedema [None]
  - Movement disorder [None]
  - Swollen tongue [None]
  - Anaphylactic reaction [None]

NARRATIVE: CASE EVENT DATE: 20120915
